FAERS Safety Report 9003481 (Version 1)
Quarter: 2013Q1

REPORT INFORMATION
  Report Type: Spontaneous
  Country: US (occurrence: US)
  Receive Date: 20130108
  Receipt Date: 20130108
  Transmission Date: 20140127
  Serious: Yes (Other)
  Sender: FDA-Public Use
  Company Number: CHPA2012US026050

PATIENT
  Age: 65 Year
  Sex: Female

DRUGS (2)
  1. EXCEDRIN ES BACK + BODY [Suspect]
     Indication: HEADACHE
     Dosage: 2 DF, ONCE/SINGLE
     Route: 048
     Dates: start: 2007, end: 2007
  2. EXCEDRIN MIGRAINE [Suspect]
     Indication: HEADACHE
     Dosage: 2 DF, AS DIRECTED
     Route: 048
     Dates: start: 2007

REACTIONS (1)
  - Lung neoplasm malignant [Recovered/Resolved]
